FAERS Safety Report 9241494 (Version 1)
Quarter: 2013Q2

REPORT INFORMATION
  Report Type: Spontaneous
  Country: CO (occurrence: CO)
  Receive Date: 20130419
  Receipt Date: 20130419
  Transmission Date: 20140414
  Serious: Yes (Other)
  Sender: FDA-Public Use
  Company Number: CO-JNJFOC-20130408781

PATIENT
  Age: 86 Year
  Sex: Male

DRUGS (3)
  1. XARELTO 15 MG COMPRIMIDOS RECUBIERTOS [Suspect]
     Indication: PRODUCT USED FOR UNKNOWN INDICATION
     Route: 048
     Dates: start: 20130323, end: 20130327
  2. ATORVASTATIN [Concomitant]
     Route: 065
     Dates: start: 201301
  3. WARFARIN [Concomitant]
     Route: 065
     Dates: start: 201301

REACTIONS (3)
  - Hepatotoxicity [Recovering/Resolving]
  - Aspartate aminotransferase increased [None]
  - Alanine aminotransferase increased [None]
